FAERS Safety Report 20803811 (Version 1)
Quarter: 2022Q2

REPORT INFORMATION
  Report Type: Report from Study
  Country: US (occurrence: US)
  Receive Date: 20220509
  Receipt Date: 20220509
  Transmission Date: 20220721
  Serious: No
  Sender: FDA-Public Use
  Company Number: US-NOVARTISTESTPH-NVSC2022US104956

PATIENT
  Sex: Female

DRUGS (1)
  1. KISQALI [Suspect]
     Active Substance: RIBOCICLIB
     Indication: Product used for unknown indication
     Dosage: 600 MG, QD  (TAKE 3 TABLETS (600MG) BY MOUTH DAILY FOR 3 WEEKS ON, 1 WEEK OFF)
     Route: 048

REACTIONS (1)
  - Urinary tract infection [Unknown]
